FAERS Safety Report 9493863 (Version 1)
Quarter: 2013Q3

REPORT INFORMATION
  Report Type: Spontaneous
  Country: US (occurrence: US)
  Receive Date: 20130902
  Receipt Date: 20130902
  Transmission Date: 20140515
  Serious: No
  Sender: FDA-Public Use
  Company Number: US-009507513-1308USA014326

PATIENT
  Age: 55 Year
  Sex: Female

DRUGS (3)
  1. SAPHRIS [Suspect]
     Indication: SCHIZOAFFECTIVE DISORDER
     Dosage: 10 MG, ONCE AT BEDTIME
     Route: 060
     Dates: start: 20130701, end: 20130827
  2. KLONOPIN [Concomitant]
  3. PROTONIX [Concomitant]

REACTIONS (4)
  - Dysgeusia [Unknown]
  - Inappropriate schedule of drug administration [Unknown]
  - Underdose [Unknown]
  - Product packaging issue [Unknown]
